FAERS Safety Report 17571858 (Version 1)
Quarter: 2020Q1

REPORT INFORMATION
  Report Type: Spontaneous
  Country: US (occurrence: US)
  Receive Date: 20200321
  Receipt Date: 20200321
  Transmission Date: 20200409
  Serious: Yes (Other)
  Sender: FDA-Public Use
  Company Number: None

PATIENT
  Age: 57 Year
  Sex: Female
  Weight: 87.3 kg

DRUGS (1)
  1. BUPROPION 75 MG TAB [Suspect]
     Active Substance: BUPROPION
     Indication: ANXIETY
     Dosage: ?          QUANTITY:1 TABLET(S);?
     Route: 048
     Dates: start: 20200210, end: 20200222

REACTIONS (1)
  - Tinnitus [None]

NARRATIVE: CASE EVENT DATE: 20200210
